FAERS Safety Report 13539451 (Version 2)
Quarter: 2017Q2

REPORT INFORMATION
  Report Type: Spontaneous
  Country: US (occurrence: US)
  Receive Date: 20170512
  Receipt Date: 20170531
  Transmission Date: 20170830
  Serious: No
  Sender: FDA-Public Use
  Company Number: US-PFIZER INC-2017207777

PATIENT
  Age: 65 Year
  Sex: Male
  Weight: 86 kg

DRUGS (1)
  1. GABAPENTIN. [Suspect]
     Active Substance: GABAPENTIN
     Dosage: UNK

REACTIONS (3)
  - Abdominal distension [Unknown]
  - Chest discomfort [Unknown]
  - Dyspnoea [Unknown]
